FAERS Safety Report 6109012-3 (Version None)
Quarter: 2009Q1

REPORT INFORMATION
  Report Type: 
  Country: None (occurrence: None)
  Receive Date: 20090310
  Receipt Date: 20090226
  Transmission Date: 20090719
  Serious: Yes (Hospitalization)
  Sender: FDA-Public Use
  Company Number: CA-ELI_LILLY_AND_COMPANY-CA200902007904

PATIENT
  Age: 76 Year
  Sex: Female

DRUGS (15)
  1. FORTEO [Suspect]
     Indication: OSTEOPOROSIS
     Dosage: 20 UG, DAILY (1/D)
     Route: 058
     Dates: start: 20081219
  2. BRICANYL [Concomitant]
     Route: 055
  3. SYMBICORT [Concomitant]
  4. SPIRIVA [Concomitant]
  5. RAMIPRIL [Concomitant]
  6. DIMETANE EXPECTORANT [Concomitant]
  7. SINGULAIR [Concomitant]
  8. NEXIUM [Concomitant]
  9. GAVISCON [Concomitant]
  10. CRESTOR [Concomitant]
  11. ATIVAN [Concomitant]
  12. CICLESONIDE [Concomitant]
     Route: 045
  13. TYLENOL (CAPLET) [Concomitant]
  14. TYLENOL (CAPLET) [Concomitant]
  15. VITAMIN D [Concomitant]

REACTIONS (1)
  - LOSS OF CONSCIOUSNESS [None]
